FAERS Safety Report 9977581 (Version 1)
Quarter: 2014Q1

REPORT INFORMATION
  Report Type: Report from Study
  Country: US (occurrence: US)
  Receive Date: 20140306
  Receipt Date: 20140306
  Transmission Date: 20141002
  Serious: No
  Sender: FDA-Public Use
  Company Number: US-ABBVIE-13P-163-1162764-00

PATIENT
  Age: 47 Year
  Sex: Female

DRUGS (12)
  1. HUMIRA [Suspect]
     Indication: PSORIASIS
     Dates: start: 20131010, end: 20131010
  2. HUMIRA [Suspect]
     Dates: start: 20131017, end: 20131017
  3. HUMIRA [Suspect]
     Dates: start: 20131024
  4. METHOTREXATE [Concomitant]
     Indication: PRODUCT USED FOR UNKNOWN INDICATION
  5. ZYRTEC [Concomitant]
     Indication: HYPERSENSITIVITY
     Dosage: 10MG DAILY
  6. LEXAPRO [Concomitant]
     Indication: DEPRESSION
     Dosage: 20MG DAILY
  7. LEXAPRO [Concomitant]
     Indication: ANXIETY
  8. NORETHINDRONE [Concomitant]
     Indication: HORMONE REPLACEMENT THERAPY
     Dosage: DAILY
  9. ACTIVELLA [Concomitant]
     Indication: HORMONE REPLACEMENT THERAPY
     Dosage: DAILY
  10. METOPROLOL [Concomitant]
     Indication: HYPERTENSION
     Dosage: DAILY
  11. FLEXERIL [Concomitant]
     Indication: MUSCLE RELAXANT THERAPY
     Dosage: 10MG DAILY
  12. FOLIC ACID [Concomitant]
     Indication: SUPPLEMENTATION THERAPY
     Dosage: DAILY

REACTIONS (1)
  - Inappropriate schedule of drug administration [Unknown]
